FAERS Safety Report 6035474-6 (Version None)
Quarter: 2009Q1

REPORT INFORMATION
  Report Type: 
  Country: None (occurrence: None)
  Receive Date: 20090112
  Receipt Date: 20090112
  Transmission Date: 20090719
  Serious: Yes (Other)
  Sender: FDA-Public Use
  Company Number: None

PATIENT
  Age: 73 Year
  Sex: Female

DRUGS (1)
  1. HYDROCORTISONE ACETATE AND PRAMOXINE HCL [Suspect]
     Indication: HAEMORRHOIDS

REACTIONS (3)
  - BURNING SENSATION [None]
  - HAEMORRHAGE [None]
  - PRODUCT QUALITY ISSUE [None]
